FAERS Safety Report 21443110 (Version 1)
Quarter: 2022Q4

REPORT INFORMATION
  Report Type: Spontaneous
  Country: HR (occurrence: HR)
  Receive Date: 20221012
  Receipt Date: 20221012
  Transmission Date: 20230112
  Serious: Yes (Hospitalization)
  Sender: FDA-Public Use
  Company Number: HR-BAYER-2022A139131

PATIENT
  Age: 77 Year
  Sex: Male

DRUGS (4)
  1. RIVAROXABAN [Suspect]
     Active Substance: RIVAROXABAN
     Indication: Product use in unapproved indication
     Dosage: 2.5 MG, BID
     Route: 048
     Dates: start: 2019
  2. ASPIRIN [Suspect]
     Active Substance: ASPIRIN
     Indication: Product use in unapproved indication
     Dosage: 100 MG, QD
     Route: 065
  3. ATORVASTATIN [Concomitant]
     Active Substance: ATORVASTATIN
     Dosage: 80 MG, QD
  4. METFORMIN HYDROCHLORIDE [Concomitant]
     Active Substance: METFORMIN HYDROCHLORIDE
     Dosage: 850 MG, BID

REACTIONS (2)
  - Atrial fibrillation [Unknown]
  - Cardiac failure chronic [Unknown]
